FAERS Safety Report 23439338 (Version 2)
Quarter: 2024Q1

REPORT INFORMATION
  Report Type: Report from Study
  Country: US (occurrence: US)
  Receive Date: 20240124
  Receipt Date: 20240223
  Transmission Date: 20240410
  Serious: Yes (Other)
  Sender: FDA-Public Use
  Company Number: US-GILEAD-2023-0654878

PATIENT
  Age: 81 Year
  Sex: Female

DRUGS (3)
  1. AMBRISENTAN [Suspect]
     Active Substance: AMBRISENTAN
     Indication: Pulmonary arterial hypertension
     Dosage: 5 MG, QD
     Route: 065
     Dates: start: 20220830
  2. AMBRISENTAN [Suspect]
     Active Substance: AMBRISENTAN
     Dosage: 5 MG, QD
     Route: 065
     Dates: start: 20220830
  3. NIFEDIPINE [Concomitant]
     Active Substance: NIFEDIPINE

REACTIONS (13)
  - Cataract [Unknown]
  - Presyncope [Unknown]
  - Dyspnoea exertional [Unknown]
  - Catheterisation cardiac [Recovered/Resolved]
  - Asthma [Unknown]
  - Fatigue [Unknown]
  - Palpitations [Unknown]
  - Wheezing [Unknown]
  - Weight increased [Unknown]
  - Peripheral swelling [Unknown]
  - Pain in extremity [Unknown]
  - Weight decreased [Unknown]
  - Peripheral swelling [Unknown]

NARRATIVE: CASE EVENT DATE: 20231201
